FAERS Safety Report 21125372 (Version 3)
Quarter: 2022Q3

REPORT INFORMATION
  Report Type: Spontaneous
  Country: IN (occurrence: IN)
  Receive Date: 20220725
  Receipt Date: 20220919
  Transmission Date: 20221026
  Serious: Yes (Other)
  Sender: FDA-Public Use
  Company Number: IN-PFIZER INC-2020121069

PATIENT
  Age: 59 Year
  Sex: Female

DRUGS (5)
  1. PALBOCICLIB [Suspect]
     Active Substance: PALBOCICLIB
     Indication: Breast cancer metastatic
     Dosage: 125 MG, 1X/DAY
     Route: 048
     Dates: start: 20180424
  2. PALBOCICLIB [Suspect]
     Active Substance: PALBOCICLIB
     Dosage: 125 MG, CYCLIC (DAILY FOR 21/28 DAYS )
     Route: 048
     Dates: start: 20180426
  3. PALBOCICLIB [Suspect]
     Active Substance: PALBOCICLIB
     Dosage: 125 MG, CYCLIC (125 MG OD FOR 21 DAYS/MONTH)
  4. LETROZOLE [Concomitant]
     Active Substance: LETROZOLE
     Dosage: 2.5 MG, 1X/DAY FOR 30 DAYS
  5. CALCIUM/VITAMIN D NOS [Concomitant]
     Dosage: 500 1-1 X

REACTIONS (10)
  - Second primary malignancy [Unknown]
  - Renal cell carcinoma [Unknown]
  - Back pain [Unknown]
  - Blood creatinine decreased [Unknown]
  - White blood cell disorder [Unknown]
  - Bone pain [Unknown]
  - Neutrophil count decreased [Unknown]
  - Inappropriate schedule of product administration [Unknown]
  - Arthralgia [Unknown]
  - Platelet count decreased [Unknown]

NARRATIVE: CASE EVENT DATE: 20210713
